FAERS Safety Report 7444954-8 (Version None)
Quarter: 2011Q2

REPORT INFORMATION
  Report Type: 
  Country: None (occurrence: None)
  Receive Date: 20110429
  Receipt Date: 20110427
  Transmission Date: 20111010
  Serious: Yes (Death, Life-Threatening)
  Sender: FDA-Public Use
  Company Number: PHFR2011GB02687

PATIENT
  Sex: Male
  Weight: 71 kg

DRUGS (6)
  1. SIMVASTATIN [Concomitant]
  2. RANITIDINE [Concomitant]
  3. CLOZARIL [Suspect]
     Indication: SCHIZOPHRENIA
     Route: 048
     Dates: start: 19960304
  4. LORAZEPAM [Concomitant]
  5. VITAMIN B COMPLEX CAP [Concomitant]
  6. ZOPICLONE [Concomitant]

REACTIONS (2)
  - DEATH [None]
  - MYOCARDIAL INFARCTION [None]
